FAERS Safety Report 16831105 (Version 1)
Quarter: 2019Q3

REPORT INFORMATION
  Report Type: Spontaneous
  Country: US (occurrence: US)
  Receive Date: 20190730
  Receipt Date: 20190730
  Transmission Date: 20191005
  Serious: No
  Sender: FDA-Public Use
  Company Number: None

PATIENT
  Age: 46 Year
  Sex: Male

DRUGS (4)
  1. ONDANSETRON [Concomitant]
     Active Substance: ONDANSETRON
  2. KEPPRA [Concomitant]
     Active Substance: LEVETIRACETAM
  3. ARMODAFINIL. [Concomitant]
     Active Substance: ARMODAFINIL
  4. TEMOZOLOMIDE 100MG CAP [Suspect]
     Active Substance: TEMOZOLOMIDE
     Indication: BRAIN NEOPLASM MALIGNANT
     Route: 048
     Dates: start: 201810

REACTIONS (3)
  - Nausea [None]
  - Herpes zoster [None]
  - Rash [None]

NARRATIVE: CASE EVENT DATE: 20190621
